FAERS Safety Report 9435416 (Version 2)
Quarter: 2013Q3

REPORT INFORMATION
  Report Type: Spontaneous
  Country: JP (occurrence: JP)
  Receive Date: 20130801
  Receipt Date: 20130808
  Transmission Date: 20140515
  Serious: Yes (Hospitalization)
  Sender: FDA-Public Use
  Company Number: JP-GLAXOSMITHKLINE-B0907620A

PATIENT
  Age: 50 Year
  Sex: Male

DRUGS (7)
  1. PAXIL [Suspect]
     Indication: DEPRESSION
     Dosage: 12.5MG PER DAY
     Route: 048
     Dates: start: 20130302
  2. PAXIL [Suspect]
     Indication: DEPRESSION
     Dosage: 37.5MG PER DAY
     Route: 048
     Dates: start: 20130604, end: 20130612
  3. PHENOBAL [Concomitant]
     Route: 065
  4. HYDANTOL [Concomitant]
     Dosage: 4IUAX THREE TIMES PER DAY
     Route: 048
  5. GOODMIN [Concomitant]
     Dosage: .5MG PER DAY
     Route: 048
  6. SILECE [Concomitant]
     Dosage: 2MG PER DAY
     Route: 048
  7. HORIZON [Concomitant]
     Dosage: 2MG THREE TIMES PER DAY
     Route: 048

REACTIONS (8)
  - Suicidal ideation [Unknown]
  - Aphagia [Unknown]
  - Depression [Unknown]
  - Subileus [Recovered/Resolved]
  - Abdominal distension [Unknown]
  - Nausea [Unknown]
  - Constipation [Recovering/Resolving]
  - Fluid intake reduced [Unknown]
